FAERS Safety Report 21916967 (Version 1)
Quarter: 2023Q1

REPORT INFORMATION
  Report Type: Other
  Country: None (occurrence: US)
  Receive Date: 20230126
  Receipt Date: 20230126
  Transmission Date: 20230418
  Serious: Yes (Other)
  Sender: FDA-Public Use
  Company Number: US-Vi-Jon Inc.-2137158

PATIENT
  Sex: Male

DRUGS (1)
  1. MAGNESIUM CITRATE CHERRY [Suspect]
     Active Substance: MAGNESIUM CITRATE
     Route: 048

REACTIONS (1)
  - Gastritis [Unknown]
